FAERS Safety Report 25626918 (Version 1)
Quarter: 2025Q3

REPORT INFORMATION
  Report Type: Spontaneous
  Country: EU (occurrence: EU)
  Receive Date: 20250731
  Receipt Date: 20250731
  Transmission Date: 20251020
  Serious: Yes (Hospitalization)
  Sender: MYLAN
  Company Number: EU-EXPCORP-2025000414

PATIENT
  Age: 42 Year
  Sex: Male

DRUGS (4)
  1. DOXYCYCLINE [Suspect]
     Active Substance: DOXYCYCLINE
     Indication: Tularaemia
     Dosage: 200 MILLIGRAM, QD
  2. DOXYCYCLINE [Suspect]
     Active Substance: DOXYCYCLINE
     Dosage: 200 MILLIGRAM, QD
     Route: 048
  3. DOXYCYCLINE [Suspect]
     Active Substance: DOXYCYCLINE
     Dosage: 200 MILLIGRAM, QD
     Route: 048
  4. DOXYCYCLINE [Suspect]
     Active Substance: DOXYCYCLINE
     Dosage: 200 MILLIGRAM, QD

REACTIONS (2)
  - Condition aggravated [Recovered/Resolved]
  - Drug ineffective [Unknown]
